FAERS Safety Report 12468252 (Version 1)
Quarter: 2016Q2

REPORT INFORMATION
  Report Type: Spontaneous
  Country: US (occurrence: None)
  Receive Date: 20160614
  Receipt Date: 20160614
  Transmission Date: 20160815
  Serious: Yes (Hospitalization)
  Sender: FDA-Public Use
  Company Number: None

PATIENT
  Age: 68 Year
  Sex: Male
  Weight: 75.3 kg

DRUGS (1)
  1. TEMOZOLOMIDE. [Suspect]
     Active Substance: TEMOZOLOMIDE
     Dates: end: 20160510

REACTIONS (16)
  - Aspartate aminotransferase increased [None]
  - Alanine aminotransferase increased [None]
  - Cognitive disorder [None]
  - Somnolence [None]
  - Coordination abnormal [None]
  - Blood albumin decreased [None]
  - White blood cell count increased [None]
  - Asthenia [None]
  - Mental impairment [None]
  - Oedema [None]
  - Memory impairment [None]
  - Aphasia [None]
  - Confusional state [None]
  - Cyst [None]
  - Fall [None]
  - Protein total decreased [None]

NARRATIVE: CASE EVENT DATE: 20160509
